FAERS Safety Report 13771132 (Version 1)
Quarter: 2017Q3

REPORT INFORMATION
  Report Type: Spontaneous
  Country: US (occurrence: US)
  Receive Date: 20170720
  Receipt Date: 20170720
  Transmission Date: 20171127
  Serious: Yes (Other)
  Sender: FDA-Public Use
  Company Number: None

PATIENT
  Age: 76 Year
  Sex: Male
  Weight: 111.1 kg

DRUGS (20)
  1. DOCUSATE SODIUM. [Concomitant]
     Active Substance: DOCUSATE SODIUM
  2. FUROSEMIDE. [Concomitant]
     Active Substance: FUROSEMIDE
  3. METOPROLOL TARTRATE. [Concomitant]
     Active Substance: METOPROLOL TARTRATE
  4. TAMSULOSIN [Concomitant]
     Active Substance: TAMSULOSIN
  5. ASPIRIN EC [Concomitant]
     Active Substance: ASPIRIN
  6. DIPHENOXYLATE-ATROPINE [Concomitant]
  7. PEMBROLIZUMAB. [Suspect]
     Active Substance: PEMBROLIZUMAB
     Indication: LUNG CANCER METASTATIC
     Dosage: ?          OTHER DOSE:MG;OTHER FREQUENCY:Q 3 WEEKS;?
     Route: 042
     Dates: start: 20170517, end: 20170717
  8. CYCLOBENZAPRINE HCL [Concomitant]
     Active Substance: CYCLOBENZAPRINE HYDROCHLORIDE
  9. DULOXETINE HCL [Concomitant]
     Active Substance: DULOXETINE HYDROCHLORIDE
  10. INSULIN LISPRO (HUMALOG SC) [Concomitant]
  11. OMEGA-3 FATTY ACIDS (FISH OIL) [Concomitant]
  12. ALPRAZOLAM. [Concomitant]
     Active Substance: ALPRAZOLAM
  13. OXYCODONE [Concomitant]
     Active Substance: OXYCODONE
  14. CHLORDIAZEPOXIDE-CLIDINIUM [Concomitant]
     Active Substance: CHLORDIAZEPOXIDE\CLIDINIUM
  15. DIPHENHYDRAMINE. [Concomitant]
     Active Substance: DIPHENHYDRAMINE
  16. INSULIN GLARGINE (LANTUS SC) [Concomitant]
  17. LISINOPRIL. [Concomitant]
     Active Substance: LISINOPRIL
  18. OXYCODONE-ACETAMINOPHEN [Concomitant]
     Active Substance: ACETAMINOPHEN\OXYCODONE HYDROCHLORIDE
  19. PREDNISONE. [Concomitant]
     Active Substance: PREDNISONE
  20. ALLOPURINOL. [Concomitant]
     Active Substance: ALLOPURINOL

REACTIONS (1)
  - Pulmonary embolism [None]

NARRATIVE: CASE EVENT DATE: 20170717
